FAERS Safety Report 22653706 (Version 1)
Quarter: 2023Q2

REPORT INFORMATION
  Report Type: Report from Study
  Country: CO (occurrence: CO)
  Receive Date: 20230629
  Receipt Date: 20230629
  Transmission Date: 20230721
  Serious: Yes (Death, Other)
  Sender: FDA-Public Use
  Company Number: CO-002147023-NVSC2023CO125958

PATIENT
  Age: 58 Year
  Sex: Female

DRUGS (1)
  1. AFINITOR [Suspect]
     Active Substance: EVEROLIMUS
     Indication: Breast cancer
     Dosage: 10 MG, QD
     Route: 048

REACTIONS (4)
  - Death [Fatal]
  - Breast cancer [Unknown]
  - Malignant neoplasm progression [Unknown]
  - Drug resistance [Unknown]

NARRATIVE: CASE EVENT DATE: 20230607
